FAERS Safety Report 15781257 (Version 2)
Quarter: 2019Q2

REPORT INFORMATION
  Report Type: Spontaneous
  Country: US (occurrence: US)
  Receive Date: 20190102
  Receipt Date: 20190507
  Transmission Date: 20190711
  Serious: No
  Sender: FDA-Public Use
  Company Number: US-SA-2018SA395641

PATIENT
  Age: 53 Year
  Sex: Female

DRUGS (1)
  1. AUBAGIO [Suspect]
     Active Substance: TERIFLUNOMIDE
     Dosage: UNK UNK, QD
     Route: 048
     Dates: start: 201811

REACTIONS (6)
  - Abnormal dreams [Unknown]
  - Paraesthesia [Unknown]
  - Carpal tunnel syndrome [Unknown]
  - Chest discomfort [Unknown]
  - Poor quality sleep [Unknown]
  - Sinus congestion [Unknown]

NARRATIVE: CASE EVENT DATE: 20181207
